FAERS Safety Report 4976605-6 (Version None)
Quarter: 2006Q2

REPORT INFORMATION
  Report Type: 
  Country: None (occurrence: None)
  Receive Date: 20060419
  Receipt Date: 20051114
  Transmission Date: 20061013
  Serious: Yes (Hospitalization, Disabling)
  Sender: FDA-Public Use
  Company Number: US-MERCK-0511USA02583

PATIENT
  Age: 57 Year
  Sex: Female
  Weight: 95 kg

DRUGS (13)
  1. ZAROXOLYN [Concomitant]
     Indication: HYPERTENSION
     Route: 048
     Dates: start: 20010828, end: 20031113
  2. HYDROCHLOROTHIAZIDE [Concomitant]
     Route: 065
  3. LOPRESSOR [Concomitant]
     Indication: HYPERTENSION
     Route: 065
     Dates: start: 19940101
  4. SYNTHROID [Concomitant]
     Indication: THYROID DISORDER
     Route: 065
     Dates: start: 20010201, end: 20040929
  5. VIOXX [Suspect]
     Indication: ARTHRALGIA
     Route: 048
     Dates: start: 20020210, end: 20040220
  6. VIOXX [Suspect]
     Indication: PAIN IN EXTREMITY
     Route: 048
     Dates: start: 20020210, end: 20040220
  7. ALLOPURINOL [Concomitant]
     Indication: GOUT
     Route: 065
     Dates: start: 20010201, end: 20050527
  8. PAXIL [Concomitant]
     Indication: DEPRESSION
     Route: 065
  9. TEQUIN [Concomitant]
     Indication: BACTERIAL INFECTION
     Route: 065
  10. PAROXETINE [Concomitant]
     Indication: OSTEOARTHRITIS
     Route: 065
  11. KLOR-CON [Concomitant]
     Indication: BLOOD POTASSIUM DECREASED
     Route: 065
     Dates: start: 20020901
  12. ACETAMINOPHEN [Concomitant]
     Route: 065
  13. FUROSEMIDE [Concomitant]
     Route: 065

REACTIONS (4)
  - ANXIETY [None]
  - CARDIAC FAILURE [None]
  - CEREBROVASCULAR ACCIDENT [None]
  - TENDONITIS [None]
